FAERS Safety Report 9421875 (Version 1)
Quarter: 2013Q3

REPORT INFORMATION
  Report Type: Spontaneous
  Country: US (occurrence: None)
  Receive Date: 20130724
  Receipt Date: 20130724
  Transmission Date: 20140515
  Serious: Yes (Other)
  Sender: FDA-Public Use
  Company Number: None

PATIENT
  Age: 56 Year
  Sex: Male
  Weight: 97.3 kg

DRUGS (10)
  1. ULTRAVIST 300 [Suspect]
     Indication: RENAL FAILURE ACUTE
     Dosage: IV ONCE  150ML
     Dates: start: 20130708
  2. VORICONAZOLE [Concomitant]
  3. INSULIN [Concomitant]
  4. ZOFRAN [Concomitant]
  5. ZOSYN [Concomitant]
  6. ACYCLOVIR [Concomitant]
  7. LYRICA [Concomitant]
  8. ZESTRIL [Concomitant]
  9. LORAZEPAM [Concomitant]
  10. COMPAZINE [Concomitant]

REACTIONS (2)
  - Blood creatine increased [None]
  - Febrile neutropenia [None]
